FAERS Safety Report 17309813 (Version 2)
Quarter: 2020Q3

REPORT INFORMATION
  Report Type: Report from Study
  Country: US (occurrence: US)
  Receive Date: 20200123
  Receipt Date: 20200908
  Transmission Date: 20201102
  Serious: Yes (Hospitalization)
  Sender: FDA-Public Use
  Company Number: US-BAUSCH-BL-2020-001412

PATIENT
  Age: 46 Year
  Sex: Male

DRUGS (2)
  1. SILIQ [Suspect]
     Active Substance: BRODALUMAB
     Indication: PSORIASIS
     Dosage: AT WEEKS 0, 1, AND 2, 210 MG/1.5 ML?APPROXIMATELY 2 YEARS AGO PRIOR TO DATE OF FOLLOW UP REPORT
     Route: 058
  2. SILIQ [Suspect]
     Active Substance: BRODALUMAB
     Dosage: 210 MG/1.5 ML, FOLLOWED BY 210 MG EVERY 2 WEEKS
     Route: 058

REACTIONS (3)
  - Arthralgia [Unknown]
  - Product dose omission issue [Unknown]
  - Myocardial infarction [Unknown]
